FAERS Safety Report 13362454 (Version 1)
Quarter: 2017Q1

REPORT INFORMATION
  Report Type: Spontaneous
  Country: US (occurrence: US)
  Receive Date: 20170323
  Receipt Date: 20170323
  Transmission Date: 20170429
  Serious: No
  Sender: FDA-Public Use
  Company Number: US-SUN PHARMACEUTICAL INDUSTRIES LTD-2016US-112465

PATIENT
  Sex: Female

DRUGS (1)
  1. SUMATRIPTAN. [Suspect]
     Active Substance: SUMATRIPTAN
     Indication: MIGRAINE
     Dosage: 1 DF, QD (PRN)
     Route: 065
     Dates: start: 20160215

REACTIONS (8)
  - Drug ineffective [Unknown]
  - Lethargy [Not Recovered/Not Resolved]
  - Product substitution issue [Unknown]
  - Palpitations [Recovered/Resolved]
  - Headache [Recovered/Resolved]
  - Adverse event [Recovered/Resolved]
  - Asthenia [Not Recovered/Not Resolved]
  - Wrong technique in product usage process [Unknown]

NARRATIVE: CASE EVENT DATE: 20160215
